FAERS Safety Report 5917387-0 (Version None)
Quarter: 2008Q4

REPORT INFORMATION
  Report Type: 
  Country: None (occurrence: None)
  Receive Date: 20081014
  Receipt Date: 20081008
  Transmission Date: 20090506
  Serious: Yes (Disabling)
  Sender: FDA-Public Use
  Company Number: A0750942A

PATIENT
  Sex: Female

DRUGS (1)
  1. TREXIMET [Suspect]
     Dosage: 1TAB SINGLE DOSE
     Route: 048
     Dates: start: 20080901, end: 20080901

REACTIONS (1)
  - HEADACHE [None]
